FAERS Safety Report 4592349-7 (Version None)
Quarter: 2005Q1

REPORT INFORMATION
  Report Type: 
  Country: None (occurrence: None)
  Receive Date: 20050228
  Receipt Date: 20041215
  Transmission Date: 20050727
  Serious: No
  Sender: FDA-Public Use
  Company Number: US-BRISTOL-MYERS SQUIBB COMPANY-12796306

PATIENT
  Sex: Male

DRUGS (2)
  1. ABILIFY [Suspect]
  2. WELLBUTRIN [Concomitant]

REACTIONS (2)
  - ADVERSE EVENT [None]
  - WHITE BLOOD CELL COUNT DECREASED [None]
